FAERS Safety Report 9375257 (Version 2)
Quarter: 2013Q3

REPORT INFORMATION
  Report Type: Spontaneous
  Country: US (occurrence: US)
  Receive Date: 20130628
  Receipt Date: 20130731
  Transmission Date: 20140515
  Serious: Yes (Hospitalization)
  Sender: FDA-Public Use
  Company Number: US-GILEAD-2013-0078000

PATIENT
  Age: 70 Year
  Sex: Female

DRUGS (5)
  1. LETAIRIS [Suspect]
     Indication: PULMONARY HYPERTENSION
     Dosage: 5 MG, QD
     Dates: start: 20130314
  2. LASIX                              /00032601/ [Concomitant]
     Dosage: 20 MG, BID
  3. LASIX                              /00032601/ [Concomitant]
     Dosage: 40 MG, BID
  4. COUMADIN                           /00014802/ [Concomitant]
  5. PREDNISONE [Concomitant]

REACTIONS (3)
  - Thrombosis [Unknown]
  - Dyspnoea [Not Recovered/Not Resolved]
  - Oedema peripheral [Not Recovered/Not Resolved]
